FAERS Safety Report 16561527 (Version 1)
Quarter: 2019Q3

REPORT INFORMATION
  Report Type: Other
  Country: GB (occurrence: GB)
  Receive Date: 20190711
  Receipt Date: 20190711
  Transmission Date: 20191004
  Serious: Yes (Hospitalization)
  Sender: FDA-Public Use
  Company Number: GB-HERITAGE PHARMACEUTICALS-2019HTG00324

PATIENT
  Age: 41 Year
  Sex: Female

DRUGS (9)
  1. ACYCLOVIR. [Suspect]
     Active Substance: ACYCLOVIR
     Indication: VARICELLA ZOSTER VIRUS INFECTION
  2. DERMOL [Concomitant]
     Active Substance: BENZALKONIUM CHLORIDE\CHLORHEXIDINE HYDROCHLORIDE\ISOPROPYL MYRISTATE\PARAFFIN
     Dosage: UNK, AS NEEDED
     Route: 061
  3. FLUCLOXACILLIN [Suspect]
     Active Substance: FLUCLOXACILLIN
     Indication: IMPETIGO
     Dosage: 4 G, 1X/DAY
     Route: 042
     Dates: start: 20190606, end: 20190608
  4. COAL TAR. [Concomitant]
     Active Substance: COAL TAR
     Dosage: UNK, AS NEEDED
     Route: 061
  5. SERTRALINE [Suspect]
     Active Substance: SERTRALINE HYDROCHLORIDE
     Dosage: 50 MG, 1X/DAY
     Route: 048
     Dates: start: 20190501, end: 20190605
  6. FERROUS GLUCONATE [Concomitant]
     Active Substance: FERROUS GLUCONATE
     Dosage: 600 MG, 1X/DAY
     Route: 048
  7. BETAMETHASONE AND CALCIPOTRIOL [Concomitant]
     Dosage: 1 DOSAGE UNITS, 1X/DAY
     Route: 061
  8. PROMETHAZINE HYDROCHLORIDE. [Suspect]
     Active Substance: PROMETHAZINE HYDROCHLORIDE
     Indication: PRURITUS
     Dosage: ^1-2 AT NIGHT^ (25 MG, AS NEEDED)
     Route: 048
     Dates: end: 20190608
  9. DESOGESTREL [Concomitant]
     Active Substance: DESOGESTREL
     Dosage: 75 ?G, 1X/DAY
     Route: 048

REACTIONS (2)
  - Pustular psoriasis [Not Recovered/Not Resolved]
  - Liver function test abnormal [Recovering/Resolving]

NARRATIVE: CASE EVENT DATE: 20190605
